FAERS Safety Report 22350532 (Version 2)
Quarter: 2023Q2

REPORT INFORMATION
  Report Type: Report from Study
  Country: US (occurrence: US)
  Receive Date: 20230522
  Receipt Date: 20230608
  Transmission Date: 20230722
  Serious: Yes (Other)
  Sender: FDA-Public Use
  Company Number: US-002147023-NVSC2023US114253

PATIENT
  Sex: Male
  Weight: 97.52 kg

DRUGS (18)
  1. COSENTYX [Suspect]
     Active Substance: SECUKINUMAB
     Indication: Ankylosing spondylitis
     Dosage: UNK
     Route: 065
  2. IBUPROFEN [Suspect]
     Active Substance: IBUPROFEN
     Indication: Ankylosing spondylitis
     Dosage: UNK
     Route: 065
  3. NAPROXEN [Suspect]
     Active Substance: NAPROXEN
     Indication: Ankylosing spondylitis
     Dosage: UNK
     Route: 065
  4. EZETIMIBE [Suspect]
     Active Substance: EZETIMIBE
     Indication: Ankylosing spondylitis
     Dosage: UNK
     Route: 065
  5. NYSTATIN\TRIAMCINOLONE [Suspect]
     Active Substance: NYSTATIN\TRIAMCINOLONE
     Indication: Ankylosing spondylitis
     Dosage: UNK
     Route: 065
  6. GABAPENTIN [Suspect]
     Active Substance: GABAPENTIN
     Indication: Ankylosing spondylitis
     Dosage: UNK
     Route: 065
  7. METFORMIN [Suspect]
     Active Substance: METFORMIN HYDROCHLORIDE
     Indication: Ankylosing spondylitis
     Dosage: UNK
     Route: 065
  8. OXYBUTYNIN CHLORIDE [Suspect]
     Active Substance: OXYBUTYNIN CHLORIDE
     Indication: Ankylosing spondylitis
     Dosage: UNK
     Route: 065
  9. BACLOFEN [Suspect]
     Active Substance: BACLOFEN
     Indication: Ankylosing spondylitis
     Dosage: UNK
     Route: 065
  10. BENAZEPRIL [Suspect]
     Active Substance: BENAZEPRIL HYDROCHLORIDE
     Indication: Ankylosing spondylitis
     Dosage: UNK
     Route: 065
  11. CHOLECALCIFEROL [Suspect]
     Active Substance: CHOLECALCIFEROL
     Indication: Ankylosing spondylitis
     Dosage: UNK
     Route: 065
  12. SULINDAC [Suspect]
     Active Substance: SULINDAC
     Indication: Ankylosing spondylitis
     Dosage: UNK
     Route: 065
  13. ROBINUL [Suspect]
     Active Substance: GLYCOPYRROLATE
     Indication: Ankylosing spondylitis
     Dosage: UNK
     Route: 065
  14. VIOXX [Suspect]
     Active Substance: ROFECOXIB
     Indication: Product used for unknown indication
     Dosage: UNK
     Route: 065
  15. ENBREL [Suspect]
     Active Substance: ETANERCEPT
     Indication: Product used for unknown indication
     Dosage: UNK
     Route: 065
  16. HUMIRA [Suspect]
     Active Substance: ADALIMUMAB
     Indication: Product used for unknown indication
     Dosage: UNK
     Route: 065
  17. ESOMEPRAZOLE [Suspect]
     Active Substance: ESOMEPRAZOLE
     Indication: Ankylosing spondylitis
     Dosage: UNK
     Route: 065
  18. VITAMIN D3 [Suspect]
     Active Substance: CHOLECALCIFEROL
     Indication: Ankylosing spondylitis
     Dosage: UNK
     Route: 065

REACTIONS (14)
  - Prostate cancer [Unknown]
  - Musculoskeletal stiffness [Unknown]
  - Costochondritis [Unknown]
  - Musculoskeletal chest pain [Unknown]
  - Arthralgia [Unknown]
  - Vertebral lesion [Unknown]
  - Arthropathy [Unknown]
  - Back pain [Not Recovered/Not Resolved]
  - Spinal stenosis [Unknown]
  - Pain in extremity [Unknown]
  - Fatigue [Unknown]
  - Nodal osteoarthritis [Unknown]
  - Product use in unapproved indication [Unknown]
  - Treatment failure [Unknown]
